FAERS Safety Report 12423641 (Version 1)
Quarter: 2016Q2

REPORT INFORMATION
  Report Type: Spontaneous
  Country: US (occurrence: US)
  Receive Date: 20160601
  Receipt Date: 20160601
  Transmission Date: 20160815
  Serious: No
  Sender: FDA-Public Use
  Company Number: US-NOVEN PHARMACEUTICALS, INC.-US2015000689

PATIENT
  Age: 8 Year
  Sex: Female

DRUGS (1)
  1. DAYTRANA [Suspect]
     Active Substance: METHYLPHENIDATE
     Indication: ATTENTION DEFICIT/HYPERACTIVITY DISORDER
     Dosage: 15 MG, UNKNOWN
     Route: 062
     Dates: start: 201507, end: 201507

REACTIONS (7)
  - Product adhesion issue [Recovered/Resolved]
  - Incorrect drug administration duration [Recovered/Resolved]
  - Application site urticaria [Recovered/Resolved]
  - Therapy cessation [Recovered/Resolved]
  - Drug ineffective [Recovered/Resolved]
  - Application site erythema [Recovered/Resolved]
  - Product quality issue [Recovered/Resolved]

NARRATIVE: CASE EVENT DATE: 201507
